FAERS Safety Report 7247372-0 (Version None)
Quarter: 2011Q1

REPORT INFORMATION
  Report Type: 
  Country: None (occurrence: None)
  Receive Date: 20110127
  Receipt Date: 20110117
  Transmission Date: 20110831
  Serious: Yes (Hospitalization)
  Sender: FDA-Public Use
  Company Number: PHHY2011US01204

PATIENT
  Sex: Female

DRUGS (1)
  1. GILENYA [Suspect]
     Indication: MULTIPLE SCLEROSIS
     Dosage: 0.5 MG, QD
     Route: 048
     Dates: start: 20101208, end: 20101231

REACTIONS (5)
  - PYREXIA [None]
  - VOMITING [None]
  - GAIT DISTURBANCE [None]
  - PNEUMONIA [None]
  - VIRAL INFECTION [None]
